FAERS Safety Report 8309464-4 (Version None)
Quarter: 2012Q2

REPORT INFORMATION
  Report Type: 
  Country: None (occurrence: None)
  Receive Date: 20120420
  Receipt Date: 20120411
  Transmission Date: 20120825
  Serious: Yes (Hospitalization)
  Sender: FDA-Public Use
  Company Number: TPA2012A02064

PATIENT
  Age: 46 Year
  Sex: Female

DRUGS (5)
  1. CLONIDINE [Concomitant]
  2. CARVEDILOL [Concomitant]
  3. EDARBYCLOR [Suspect]
     Indication: HYPERTENSION
     Dosage: 40/12.5 MG, QD, ORAL
     Route: 048
     Dates: start: 20120214, end: 20120314
  4. BUSPAR [Concomitant]
  5. NORVASC [Concomitant]

REACTIONS (3)
  - COMA [None]
  - CONVULSION [None]
  - ELECTROLYTE IMBALANCE [None]
